FAERS Safety Report 11068240 (Version 3)
Quarter: 2015Q2

REPORT INFORMATION
  Report Type: Report from Study
  Country: GB (occurrence: GB)
  Receive Date: 20150427
  Receipt Date: 20150604
  Transmission Date: 20150821
  Serious: Yes (Other)
  Sender: FDA-Public Use
  Company Number: GB-ROCHE-1568462

PATIENT
  Age: 69 Year
  Sex: Male
  Weight: 94 kg

DRUGS (13)
  1. BENDROFLUMETHIAZIDE [Concomitant]
     Active Substance: BENDROFLUMETHIAZIDE
     Route: 065
     Dates: end: 20150427
  2. ASPIRIN. [Concomitant]
     Active Substance: ASPIRIN
     Route: 065
     Dates: end: 20150427
  3. GLYCERYL TRINITRATE [Concomitant]
     Active Substance: NITROGLYCERIN
     Dosage: 400MICROGRAMS/DOSE PUMP
     Route: 050
     Dates: end: 20141208
  4. CLOPIDOGREL [Concomitant]
     Active Substance: CLOPIDOGREL BISULFATE
     Dosage: TILL 18/9/2015
     Route: 065
     Dates: end: 20150427
  5. METFORMIN [Concomitant]
     Active Substance: METFORMIN HYDROCHLORIDE
     Route: 065
     Dates: end: 20150323
  6. LOSARTAN [Concomitant]
     Active Substance: LOSARTAN
     Route: 065
     Dates: end: 20150427
  7. ROACTEMRA [Suspect]
     Active Substance: TOCILIZUMAB
     Indication: RHEUMATOID ARTHRITIS
     Route: 058
     Dates: start: 20141229
  8. AMITRIPTYLINE [Concomitant]
     Active Substance: AMITRIPTYLINE
     Dosage: 3 IN THE EVENING
     Route: 065
     Dates: end: 20150427
  9. COCODAMOL [Concomitant]
     Active Substance: ACETAMINOPHEN\CODEINE PHOSPHATE
     Dosage: 30MG/500MG
     Route: 065
     Dates: end: 20150427
  10. ALLOPURINOL. [Concomitant]
     Active Substance: ALLOPURINOL
     Route: 065
     Dates: end: 20150427
  11. OMEPRAZOLE. [Concomitant]
     Active Substance: OMEPRAZOLE
     Route: 065
     Dates: end: 20150427
  12. SIMVADOR [Concomitant]
     Active Substance: SIMVASTATIN
     Route: 065
     Dates: end: 20150427
  13. ATENOLOL. [Concomitant]
     Active Substance: ATENOLOL
     Route: 065
     Dates: end: 20150427

REACTIONS (4)
  - Neutrophil count decreased [Unknown]
  - Postoperative wound infection [Not Recovered/Not Resolved]
  - Rheumatoid arthritis [Unknown]
  - Dermal cyst [Not Recovered/Not Resolved]

NARRATIVE: CASE EVENT DATE: 20150402
